FAERS Safety Report 16400620 (Version 4)
Quarter: 2019Q3

REPORT INFORMATION
  Report Type: Spontaneous
  Country: CZ (occurrence: CZ)
  Receive Date: 20190606
  Receipt Date: 20190927
  Transmission Date: 20191004
  Serious: Yes (Death, Hospitalization, Other)
  Sender: FDA-Public Use
  Company Number: CZ-JNJFOC-20190601934

PATIENT
  Sex: Male

DRUGS (20)
  1. INFLIXIMAB, RECOMBINANT [Suspect]
     Active Substance: INFLIXIMAB
     Indication: PARAESTHESIA
     Route: 042
  2. ISOPRENALINE [Suspect]
     Active Substance: ISOPROTERENOL HYDROCHLORIDE
     Indication: BRADYCARDIA
     Route: 065
     Dates: start: 201812
  3. METHYLPREDNISOLONE. [Concomitant]
     Active Substance: METHYLPREDNISOLONE
     Route: 065
  4. CABOZANTINIB [Concomitant]
     Active Substance: CABOZANTINIB
     Indication: RENAL CANCER
  5. SUNITINIB [Concomitant]
     Active Substance: SUNITINIB
     Indication: RENAL CANCER
  6. INFLIXIMAB [Suspect]
     Active Substance: INFLIXIMAB
     Indication: PARAESTHESIA
     Route: 042
     Dates: start: 20181215
  7. INFLIXIMAB [Suspect]
     Active Substance: INFLIXIMAB
     Indication: AREFLEXIA
  8. SUMETROLIM [Suspect]
     Active Substance: SULFAMETHOXAZOLE\TRIMETHOPRIM
     Indication: RENAL CANCER
     Route: 065
     Dates: start: 201812
  9. ATEZOLIZUMAB. [Concomitant]
     Active Substance: ATEZOLIZUMAB
     Indication: RENAL CANCER
  10. ISOPRENALINE [Suspect]
     Active Substance: ISOPROTERENOL HYDROCHLORIDE
     Indication: HYPOTENSION
  11. INFLIXIMAB [Suspect]
     Active Substance: INFLIXIMAB
     Indication: CONDITION AGGRAVATED
  12. CLARITHROMYCIN. [Concomitant]
     Active Substance: CLARITHROMYCIN
     Indication: BRONCHITIS
  13. INFLIXIMAB [Suspect]
     Active Substance: INFLIXIMAB
     Indication: NEUROLOGICAL SYMPTOM
  14. SOLU-MEDROL [Suspect]
     Active Substance: METHYLPREDNISOLONE SODIUM SUCCINATE
     Indication: LANGUAGE DISORDER
     Dosage: 2 MG/KG, UNK
     Route: 042
     Dates: start: 20181210
  15. ISOPRENALINE [Suspect]
     Active Substance: ISOPROTERENOL HYDROCHLORIDE
     Indication: MUSCULAR WEAKNESS
  16. CEFUROXIME. [Suspect]
     Active Substance: CEFUROXIME
     Indication: RENAL CANCER
     Route: 065
     Dates: start: 201812
  17. FLUCONAZOLE. [Suspect]
     Active Substance: FLUCONAZOLE
     Indication: RENAL CANCER
     Route: 065
  18. INFLIXIMAB [Suspect]
     Active Substance: INFLIXIMAB
     Indication: GUILLAIN-BARRE SYNDROME
  19. SOLU-MEDROL [Suspect]
     Active Substance: METHYLPREDNISOLONE SODIUM SUCCINATE
     Indication: RENAL CANCER
     Dosage: 1 MG/KG, UNK
     Route: 042
     Dates: start: 201812
  20. NIVOLUMAB [Concomitant]
     Active Substance: NIVOLUMAB
     Indication: RENAL CANCER

REACTIONS (7)
  - Hypotension [Fatal]
  - Product use in unapproved indication [Unknown]
  - Muscular weakness [Fatal]
  - Neurological decompensation [Fatal]
  - Off label use [Unknown]
  - Drug ineffective [Fatal]
  - Bradycardia [Fatal]
